FAERS Safety Report 6865210-2 (Version None)
Quarter: 2010Q3

REPORT INFORMATION
  Report Type: 
  Country: None (occurrence: None)
  Receive Date: 20100721
  Receipt Date: 20080416
  Transmission Date: 20110219
  Serious: No
  Sender: FDA-Public Use
  Company Number: US-PFIZER INC-2008033646

PATIENT
  Sex: Female
  Weight: 72.3 kg

DRUGS (7)
  1. CHANTIX [Suspect]
     Indication: SMOKING CESSATION THERAPY
     Dates: start: 20080415
  2. LITHIUM [Concomitant]
  3. TRAZODONE HYDROCHLORIDE [Concomitant]
  4. SEROQUEL [Concomitant]
  5. PROZAC [Concomitant]
  6. NEXIUM [Concomitant]
  7. ALBUTEROL [Concomitant]

REACTIONS (2)
  - NAUSEA [None]
  - VOMITING [None]
